FAERS Safety Report 17159865 (Version 3)
Quarter: 2021Q1

REPORT INFORMATION
  Report Type: Spontaneous
  Country: US (occurrence: US)
  Receive Date: 20191216
  Receipt Date: 20210309
  Transmission Date: 20210419
  Serious: Yes (Other)
  Sender: FDA-Public Use
  Company Number: US-GILEAD-2019-0442012

PATIENT
  Age: 59 Year
  Sex: Female
  Weight: 35.37 kg

DRUGS (47)
  1. TIVICAY [Concomitant]
     Active Substance: DOLUTEGRAVIR SODIUM
  2. CLARITIN [CLARITHROMYCIN] [Concomitant]
     Active Substance: CLARITHROMYCIN
  3. PROAIR HFA [Concomitant]
     Active Substance: ALBUTEROL SULFATE
  4. ZOLOFT [Concomitant]
     Active Substance: SERTRALINE HYDROCHLORIDE
  5. SODIUM BICARBONATE. [Concomitant]
     Active Substance: SODIUM BICARBONATE
  6. MULTIVITAMIN [Concomitant]
     Active Substance: VITAMINS
  7. CHANTIX [Concomitant]
     Active Substance: VARENICLINE TARTRATE
  8. ADVAIR HFA [Concomitant]
     Active Substance: FLUTICASONE PROPIONATE\SALMETEROL XINAFOATE
  9. BANOPHEN [Concomitant]
     Active Substance: DIPHENHYDRAMINE HYDROCHLORIDE
  10. PEPCID [Concomitant]
     Active Substance: FAMOTIDINE
  11. PHENERGAN [Concomitant]
     Active Substance: PROMETHAZINE HYDROCHLORIDE
  12. VANCOMYCIN [Concomitant]
     Active Substance: VANCOMYCIN
  13. VERAMYST [Concomitant]
     Active Substance: FLUTICASONE FUROATE
  14. QUETIAPINE. [Concomitant]
     Active Substance: QUETIAPINE
  15. PREDNISONE. [Concomitant]
     Active Substance: PREDNISONE
  16. ALBUTEROL [SALBUTAMOL] [Concomitant]
     Active Substance: ALBUTEROL
  17. SEROQUEL XR [Concomitant]
     Active Substance: QUETIAPINE FUMARATE
  18. ENSURE [Concomitant]
     Active Substance: AMINO ACIDS\DEXTROSE\ELECTROLYTES NOS\SOYBEAN OIL\VITAMINS
  19. EPCLUSA [Concomitant]
     Active Substance: SOFOSBUVIR\VELPATASVIR
  20. LEVAQUIN [Concomitant]
     Active Substance: LEVOFLOXACIN
  21. CYPROHEPTADINE. [Concomitant]
     Active Substance: CYPROHEPTADINE
  22. ENULOSE [Concomitant]
     Active Substance: LACTULOSE
  23. TIOTROPIUM [Concomitant]
     Active Substance: TIOTROPIUM
  24. GUAIFENESIN. [Concomitant]
     Active Substance: GUAIFENESIN
  25. KLONOPIN [Concomitant]
     Active Substance: CLONAZEPAM
  26. DESCOVY [Concomitant]
     Active Substance: EMTRICITABINE\TENOFOVIR ALAFENAMIDE FUMARATE
  27. AZITHROMYCIN ANHYDROUS. [Concomitant]
     Active Substance: AZITHROMYCIN ANHYDROUS
  28. CLONAZEPAM. [Concomitant]
     Active Substance: CLONAZEPAM
  29. FLUTICASONE + SALMETEROL [Concomitant]
     Active Substance: FLUTICASONE FUROATE\SALMETEROL XINAFOATE
  30. MIRTAZAPINE. [Concomitant]
     Active Substance: MIRTAZAPINE
  31. SERTRALINE [Concomitant]
     Active Substance: SERTRALINE HYDROCHLORIDE
  32. SYMBICORT [Concomitant]
     Active Substance: BUDESONIDE\FORMOTEROL FUMARATE DIHYDRATE
  33. ACTIN [Concomitant]
  34. TRUVADA [Suspect]
     Active Substance: EMTRICITABINE\TENOFOVIR DISOPROXIL FUMARATE
     Dosage: UNK
     Route: 048
     Dates: start: 20120704, end: 20170604
  35. ESCITALOPRAM [Concomitant]
     Active Substance: ESCITALOPRAM OXALATE
  36. GABAPENTIN. [Concomitant]
     Active Substance: GABAPENTIN
  37. PROTONIX [Concomitant]
     Active Substance: PANTOPRAZOLE SODIUM
  38. COLACE [Concomitant]
     Active Substance: DOCUSATE SODIUM
  39. LEVOFLOXACIN. [Concomitant]
     Active Substance: LEVOFLOXACIN
  40. TRUVADA [Suspect]
     Active Substance: EMTRICITABINE\TENOFOVIR DISOPROXIL FUMARATE
     Dosage: UNK
     Route: 048
     Dates: start: 20160204, end: 20170610
  41. ISENTRESS [Concomitant]
     Active Substance: RALTEGRAVIR POTASSIUM
  42. BENZONATATE. [Concomitant]
     Active Substance: BENZONATATE
  43. FAMOTIDINE. [Concomitant]
     Active Substance: FAMOTIDINE
  44. PANTOPRAZOLE [Concomitant]
     Active Substance: PANTOPRAZOLE
  45. VENTOLIN [Concomitant]
     Active Substance: ALBUTEROL SULFATE
  46. FLAGYL [Concomitant]
     Active Substance: METRONIDAZOLE\METRONIDAZOLE HYDROCHLORIDE
  47. TRUVADA [Suspect]
     Active Substance: EMTRICITABINE\TENOFOVIR DISOPROXIL FUMARATE
     Indication: HIV INFECTION
     Dosage: UNK
     Route: 048
     Dates: start: 2015

REACTIONS (11)
  - Renal failure [Unknown]
  - Anxiety [Not Recovered/Not Resolved]
  - Anhedonia [Not Recovered/Not Resolved]
  - Emotional distress [Not Recovered/Not Resolved]
  - Asthenia [Not Recovered/Not Resolved]
  - Gait disturbance [Not Recovered/Not Resolved]
  - Economic problem [Not Recovered/Not Resolved]
  - Quality of life decreased [Not Recovered/Not Resolved]
  - Pain [Not Recovered/Not Resolved]
  - Osteoporosis [Not Recovered/Not Resolved]
  - Bone density decreased [Unknown]

NARRATIVE: CASE EVENT DATE: 201611
